FAERS Safety Report 12585964 (Version 2)
Quarter: 2016Q3

REPORT INFORMATION
  Report Type: Spontaneous
  Country: US (occurrence: US)
  Receive Date: 20160725
  Receipt Date: 20160818
  Transmission Date: 20161109
  Serious: Yes (Other)
  Sender: FDA-Public Use
  Company Number: US-009507513-1607USA007444

PATIENT
  Sex: Female

DRUGS (1)
  1. TEMODAR [Suspect]
     Active Substance: TEMOZOLOMIDE
     Dosage: UNK
     Route: 048

REACTIONS (5)
  - Gait disturbance [Unknown]
  - Neoplasm malignant [Unknown]
  - Multiple sclerosis [Unknown]
  - Adverse event [Unknown]
  - Nausea [Unknown]
